FAERS Safety Report 7787673-0 (Version None)
Quarter: 2011Q3

REPORT INFORMATION
  Report Type: 
  Country: None (occurrence: None)
  Receive Date: 20110929
  Receipt Date: 20110923
  Transmission Date: 20111222
  Serious: Yes (Death, Life-Threatening, Hospitalization, Other)
  Sender: FDA-Public Use
  Company Number: FR-BAXTER-2011BH024527

PATIENT
  Age: 70 Year
  Sex: Male

DRUGS (11)
  1. CYCLOPHOSPHAMIDE [Suspect]
     Indication: NON-HODGKIN'S LYMPHOMA
     Route: 042
     Dates: end: 20080101
  2. DOXORUBICIN HCL [Suspect]
     Route: 065
     Dates: start: 19990101
  3. VEPESID [Suspect]
     Route: 065
     Dates: start: 19990101
  4. VEPESID [Suspect]
     Indication: NON-HODGKIN'S LYMPHOMA
     Route: 065
     Dates: end: 20080101
  5. RITUXIMAB [Suspect]
     Route: 065
  6. CYCLOPHOSPHAMIDE [Suspect]
     Route: 042
     Dates: start: 19990101
  7. DOXORUBICIN HCL [Suspect]
     Indication: NON-HODGKIN'S LYMPHOMA
     Route: 065
     Dates: end: 20080101
  8. TREANDA [Suspect]
     Indication: NON-HODGKIN'S LYMPHOMA
     Route: 042
  9. CYCLOPHOSPHAMIDE [Suspect]
     Route: 042
  10. RITUXIMAB [Suspect]
     Indication: NON-HODGKIN'S LYMPHOMA
     Route: 065
  11. FLUDARABINE PHOSPHATE [Suspect]
     Indication: NON-HODGKIN'S LYMPHOMA
     Route: 042
     Dates: end: 20050101

REACTIONS (3)
  - MYELODYSPLASTIC SYNDROME [None]
  - CARDIAC FAILURE [None]
  - ANAEMIA [None]
